FAERS Safety Report 12854913 (Version 21)
Quarter: 2017Q3

REPORT INFORMATION
  Report Type: Report from Study
  Country: US (occurrence: US)
  Receive Date: 20161017
  Receipt Date: 20170829
  Transmission Date: 20171127
  Serious: Yes (Hospitalization, Other)
  Sender: FDA-Public Use
  Company Number: US-JNJFOC-20161010201

PATIENT
  Age: 65 Year
  Sex: Male

DRUGS (18)
  1. IMBRUVICA [Suspect]
     Active Substance: IBRUTINIB
     Indication: CHRONIC LYMPHOCYTIC LEUKAEMIA
     Route: 048
  2. KLONOPIN [Concomitant]
     Active Substance: CLONAZEPAM
  3. IMBRUVICA [Suspect]
     Active Substance: IBRUTINIB
     Indication: CHRONIC LYMPHOCYTIC LEUKAEMIA
     Route: 048
     Dates: start: 20161004
  4. TRAMADOL. [Concomitant]
     Active Substance: TRAMADOL
  5. IMBRUVICA [Suspect]
     Active Substance: IBRUTINIB
     Indication: CHRONIC LYMPHOCYTIC LEUKAEMIA
     Route: 048
     Dates: start: 20170105
  6. DICLOFENAC [Concomitant]
     Active Substance: DICLOFENAC
  7. VITAMIN D3 [Concomitant]
     Active Substance: CHOLECALCIFEROL
  8. VITAMIN D [Concomitant]
     Active Substance: CHOLECALCIFEROL
  9. IMBRUVICA [Suspect]
     Active Substance: IBRUTINIB
     Indication: CHRONIC LYMPHOCYTIC LEUKAEMIA
     Route: 048
     Dates: start: 201610, end: 20170105
  10. LYRICA [Concomitant]
     Active Substance: PREGABALIN
  11. PROVIGIL [Concomitant]
     Active Substance: MODAFINIL
  12. IMBRUVICA [Suspect]
     Active Substance: IBRUTINIB
     Indication: CHRONIC LYMPHOCYTIC LEUKAEMIA
     Route: 048
     Dates: start: 20161003, end: 20170116
  13. LOPERAMIDE [Concomitant]
     Active Substance: LOPERAMIDE
  14. CYMBALTA [Concomitant]
     Active Substance: DULOXETINE HYDROCHLORIDE
  15. ULTRAM [Concomitant]
     Active Substance: TRAMADOL HYDROCHLORIDE
  16. IMBRUVICA [Suspect]
     Active Substance: IBRUTINIB
     Indication: CHRONIC LYMPHOCYTIC LEUKAEMIA
     Route: 048
     Dates: start: 20161003, end: 201610
  17. IMBRUVICA [Suspect]
     Active Substance: IBRUTINIB
     Indication: CHRONIC LYMPHOCYTIC LEUKAEMIA
     Route: 048
     Dates: start: 20161004
  18. POISON IVY [Suspect]
     Active Substance: TOXICODENDRON RADICANS LEAF
     Indication: PRODUCT USED FOR UNKNOWN INDICATION
     Route: 065

REACTIONS (26)
  - Insomnia [Not Recovered/Not Resolved]
  - Dysphonia [Recovered/Resolved]
  - Blood count abnormal [Unknown]
  - Chest pain [Not Recovered/Not Resolved]
  - Vomiting [Unknown]
  - Atrial fibrillation [Not Recovered/Not Resolved]
  - White blood cell count increased [Not Recovered/Not Resolved]
  - Muscle spasms [Not Recovered/Not Resolved]
  - Influenza like illness [Unknown]
  - Dehydration [Unknown]
  - Contusion [Not Recovered/Not Resolved]
  - Platelet count decreased [Not Recovered/Not Resolved]
  - Dermatitis contact [Recovered/Resolved]
  - Sinusitis [Recovering/Resolving]
  - Skin haemorrhage [Recovered/Resolved]
  - Thrombosis [Not Recovered/Not Resolved]
  - Exposure to toxic agent [Recovered/Resolved]
  - Nausea [Unknown]
  - Dyspnoea [Not Recovered/Not Resolved]
  - Rash macular [Unknown]
  - Myelodysplastic syndrome [Unknown]
  - Chest discomfort [Unknown]
  - Malaise [Unknown]
  - Macule [Not Recovered/Not Resolved]
  - Pain [Not Recovered/Not Resolved]
  - Dry mouth [Unknown]

NARRATIVE: CASE EVENT DATE: 2016
